FAERS Safety Report 9643092 (Version 2)
Quarter: 2014Q1

REPORT INFORMATION
  Report Type: Spontaneous
  Country: DK (occurrence: DE)
  Receive Date: 20131024
  Receipt Date: 20140128
  Transmission Date: 20141002
  Serious: Yes (Life-Threatening, Other)
  Sender: FDA-Public Use
  Company Number: DE-FRI-1000050479

PATIENT
  Sex: Male

DRUGS (1)
  1. ESCITALOPRAM [Suspect]

REACTIONS (2)
  - Cardiac arrest [Recovered/Resolved]
  - Electrocardiogram QT prolonged [Recovered/Resolved]
